FAERS Safety Report 4577256-8 (Version None)
Quarter: 2005Q1

REPORT INFORMATION
  Report Type: 
  Country: None (occurrence: None)
  Receive Date: 20050209
  Receipt Date: 20050126
  Transmission Date: 20050727
  Serious: Yes (Death, Hospitalization)
  Sender: FDA-Public Use
  Company Number: 2004AL000724

PATIENT
  Age: 46 Year
  Sex: Male

DRUGS (11)
  1. HYDRAMINE [Suspect]
     Dosage: PO
     Route: 048
  2. HYDRAMINE [Suspect]
     Dosage: PO
     Route: 048
  3. CYCLOBENZAPRINE [Suspect]
     Dosage: PO
     Route: 048
  4. HALOPERIDOL [Suspect]
     Dosage: PO
     Route: 048
  5. IBUPROFEN ORAL SUSPENSION USP, 100 MG/5 ML (OTC) (ALPHARMA) [Suspect]
     Dosage: PO
     Route: 048
  6. IBUPROFEN ORAL SUSPENSION USP, 100 MG/5 ML (RX) (ALPHARMA) [Suspect]
     Dosage: PO
     Route: 048
  7. METHYLPHENIDATE [Suspect]
     Dosage: PO
     Route: 048
  8. CEPHALEXIN [Suspect]
     Dosage: PO
     Route: 048
  9. NAPROXEN [Suspect]
     Dosage: PO
     Route: 048
  10. CHLORZOXAZONE [Suspect]
     Dosage: PO
     Route: 048
  11. ETHANOL [Suspect]
     Dosage: PO
     Route: 048

REACTIONS (6)
  - COMPLETED SUICIDE [None]
  - ELECTROCARDIOGRAM QRS COMPLEX PROLONGED [None]
  - HEART RATE INCREASED [None]
  - MULTIPLE DRUG OVERDOSE [None]
  - RESPIRATORY ARREST [None]
  - STUPOR [None]
